FAERS Safety Report 6159311-4 (Version None)
Quarter: 2009Q2

REPORT INFORMATION
  Report Type: 
  Country: None (occurrence: None)
  Receive Date: 20090417
  Receipt Date: 20090407
  Transmission Date: 20091009
  Serious: Yes (Hospitalization)
  Sender: FDA-Public Use
  Company Number: DE-ABBOTT-09P-062-0566721-00

PATIENT
  Sex: Female
  Weight: 83 kg

DRUGS (6)
  1. HUMIRA [Suspect]
     Indication: RHEUMATOID ARTHRITIS
     Dates: start: 20080409
  2. HUMIRA [Suspect]
     Dates: start: 20090327
  3. ANALGESIC [Concomitant]
     Indication: DRUG USE FOR UNKNOWN INDICATION
     Route: 042
  4. CORTISON [Concomitant]
     Indication: DRUG USE FOR UNKNOWN INDICATION
  5. LEVOTHYROXINE SODIUM [Concomitant]
     Indication: DRUG USE FOR UNKNOWN INDICATION
  6. RAMIPRIL [Concomitant]
     Indication: DRUG USE FOR UNKNOWN INDICATION

REACTIONS (1)
  - FOOT OPERATION [None]
